FAERS Safety Report 7224564-8 (Version None)
Quarter: 2011Q1

REPORT INFORMATION
  Report Type: 
  Country: None (occurrence: None)
  Receive Date: 20110106
  Receipt Date: 20110106
  Transmission Date: 20110831
  Serious: Yes (Hospitalization)
  Sender: FDA-Public Use
  Company Number: None

PATIENT
  Age: 83 Year
  Sex: Female
  Weight: 72.72 kg

DRUGS (18)
  1. PIROXICAM [Suspect]
     Indication: OSTEOARTHRITIS
     Dosage: 20MG QPM PO  CHRONIC
     Route: 048
  2. NEXIUM [Concomitant]
  3. RANITIDINE [Concomitant]
  4. FERROUS SULFATE TAB [Concomitant]
  5. ALPRAZOLAM [Concomitant]
  6. COZAAR [Concomitant]
  7. MIRAPEX [Concomitant]
  8. AMBIEN [Concomitant]
  9. FUROSEMIDE [Concomitant]
  10. GABAPENTIN [Concomitant]
  11. SYNTHROID [Concomitant]
  12. ALBUTEROL [Concomitant]
  13. ASPIRIN [Suspect]
     Indication: ATRIAL FIBRILLATION
     Dosage: CHRONIC
  14. TYLENOL-500 [Concomitant]
  15. SAVELLA [Concomitant]
  16. AMITRIPTYLINE HCL [Concomitant]
  17. COREG [Concomitant]
  18. XALATAN [Concomitant]

REACTIONS (7)
  - GASTROINTESTINAL HAEMORRHAGE [None]
  - HIATUS HERNIA [None]
  - NAUSEA [None]
  - GASTRIC ULCER [None]
  - HAEMOGLOBIN DECREASED [None]
  - OCCULT BLOOD POSITIVE [None]
  - HAEMATEMESIS [None]
